FAERS Safety Report 7975220 (Version 3)
Quarter: 2016Q4

REPORT INFORMATION
  Report Type: Report from Study
  Country: JP (occurrence: JP)
  Receive Date: 20110606
  Receipt Date: 20161210
  Transmission Date: 20170207
  Serious: Yes (Death, Life-Threatening, Other)
  Sender: FDA-Public Use
  Company Number: JP-AMGEN-JPNSP2011028584

PATIENT
  Age: 61 Year
  Sex: Female
  Weight: 60 kg

DRUGS (7)
  1. LIPITOR [Concomitant]
     Active Substance: ATORVASTATIN CALCIUM
     Indication: HYPERLIPIDAEMIA
     Dosage: 10 MG, QD
     Route: 048
     Dates: start: 20100420, end: 20110522
  2. SEFTAC [Concomitant]
     Active Substance: TEPRENONE
     Indication: PROPHYLAXIS
     Dosage: 50 MG, QD
     Route: 048
     Dates: start: 20100420, end: 20110522
  3. BENET [Concomitant]
     Active Substance: RISEDRONATE SODIUM
     Indication: OSTEOPOROSIS
     Dosage: 17.5 MG, QWK
     Route: 048
     Dates: start: 20110329, end: 20110522
  4. PREDNISOLONE. [Concomitant]
     Active Substance: PREDNISOLONE
     Indication: IMMUNE THROMBOCYTOPENIC PURPURA
     Dosage: 5  TO 7.5 MG, QD
     Route: 048
     Dates: start: 20110419
  5. ARTIST [Concomitant]
     Active Substance: CARVEDILOL
     Indication: HYPERTENSION
     Dosage: 5 MG, BID
     Route: 048
     Dates: start: 20100420, end: 20110522
  6. ROMIPLOSTIM [Suspect]
     Active Substance: ROMIPLOSTIM
     Indication: IMMUNE THROMBOCYTOPENIC PURPURA
     Dosage: 1 MUG/KG, QWK
     Route: 058
     Dates: start: 20110510, end: 20110517
  7. ALFAROL [Concomitant]
     Active Substance: ALFACALCIDOL
     Indication: OSTEOPOROSIS
     Dosage: 1 MUG, QD
     Route: 048
     Dates: start: 20110329, end: 20110522

REACTIONS (3)
  - Cerebral haemorrhage [Recovered/Resolved with Sequelae]
  - Cerebral haemorrhage [Fatal]
  - Disease progression [Fatal]

NARRATIVE: CASE EVENT DATE: 20110523
